FAERS Safety Report 14442108 (Version 1)
Quarter: 2018Q1

REPORT INFORMATION
  Report Type: Spontaneous
  Country: US (occurrence: US)
  Receive Date: 20180125
  Receipt Date: 20180125
  Transmission Date: 20180509
  Serious: Yes (Life-Threatening, Hospitalization)
  Sender: FDA-Public Use
  Company Number: US-TEVA-2018-US-850241

PATIENT
  Age: 48 Year
  Sex: Male

DRUGS (11)
  1. ZIPRASIDONE. [Suspect]
     Active Substance: ZIPRASIDONE
     Indication: AGITATION
     Dosage: 10 MG ADMINISTERED AT 6PM
     Route: 030
  2. DANTROLENE. [Suspect]
     Active Substance: DANTROLENE SODIUM
     Indication: MUSCLE RELAXANT THERAPY
     Dosage: 200MG, THEN AGAIN RECEIVED AT INCREASED DOSE
     Route: 040
  3. TACROLIMUS. [Concomitant]
     Active Substance: TACROLIMUS
     Route: 065
  4. PREDNISONE. [Concomitant]
     Active Substance: PREDNISONE
     Route: 065
  5. LAMOTRIGINE. [Suspect]
     Active Substance: LAMOTRIGINE
     Dosage: ON POSTOPERATIVE DAY 1
     Route: 065
  6. PROMETHAZINE [Suspect]
     Active Substance: PROMETHAZINE\PROMETHAZINE HYDROCHLORIDE
     Dosage: CUMULATIVELY RECEIVED 68.75 MG, LATER RECEIVED ANOTHER DOSE
     Route: 065
  7. DANTROLENE. [Suspect]
     Active Substance: DANTROLENE SODIUM
     Dosage: 250MG
     Route: 040
  8. LAMOTRIGINE. [Suspect]
     Active Substance: LAMOTRIGINE
     Dosage: THEN RESUMED AT INCREASED DOSE ON POSTOPERATIVE DAY 1
     Route: 065
  9. LITHIUM. [Suspect]
     Active Substance: LITHIUM
     Dosage: 300MG AT NIGHT, THEN RESUMED AT INCREASED DOSE ON POSTOPERATIVE DAY 1
     Route: 065
  10. ONDANSETRON [Concomitant]
     Active Substance: ONDANSETRON
     Indication: NAUSEA
     Route: 065
  11. LITHIUM. [Suspect]
     Active Substance: LITHIUM
     Dosage: 600MG DAILY; ON POSTOPERATIVE DAY 1
     Route: 065

REACTIONS (1)
  - Neuroleptic malignant syndrome [Recovered/Resolved]
